FAERS Safety Report 8409725-4 (Version None)
Quarter: 2012Q2

REPORT INFORMATION
  Report Type: 
  Country: None (occurrence: None)
  Receive Date: 20120529
  Receipt Date: 20120521
  Transmission Date: 20120825
  Serious: Yes (Other)
  Sender: FDA-Public Use
  Company Number: 2012050050

PATIENT
  Sex: Male
  Weight: 124.7392 kg

DRUGS (4)
  1. FLOMAX [Concomitant]
  2. MUSE [Suspect]
     Indication: CHRONIC SINUSITIS
     Dosage: 500 MCG, AS REQUIRED, URETHRAL; 1000 MCG, AS REQUIRED, URETHRAL
     Route: 066
     Dates: start: 20111205, end: 20111214
  3. MUSE [Suspect]
     Indication: CHRONIC SINUSITIS
     Dosage: 500 MCG, AS REQUIRED, URETHRAL; 1000 MCG, AS REQUIRED, URETHRAL
     Route: 066
     Dates: start: 20100101
  4. MECLIZINE [Concomitant]

REACTIONS (4)
  - DRUG INEFFECTIVE [None]
  - TYPE 2 DIABETES MELLITUS [None]
  - WRONG TECHNIQUE IN DRUG USAGE PROCESS [None]
  - SLEEP APNOEA SYNDROME [None]
